FAERS Safety Report 9370307 (Version 2)
Quarter: 2013Q3

REPORT INFORMATION
  Report Type: Spontaneous
  Country: JP (occurrence: JP)
  Receive Date: 20130626
  Receipt Date: 20130705
  Transmission Date: 20140515
  Serious: Yes (Other)
  Sender: FDA-Public Use
  Company Number: JP-ABBOTT-13P-087-1109778-00

PATIENT
  Sex: 0

DRUGS (1)
  1. LEUPLIN SR FOR INJECTION KIT 11.25 (LEUPRORELIN ACETATE) [Suspect]
     Indication: PRODUCT USED FOR UNKNOWN INDICATION
     Route: 058

REACTIONS (1)
  - Aplastic anaemia [Unknown]
